FAERS Safety Report 18319327 (Version 1)
Quarter: 2020Q3

REPORT INFORMATION
  Report Type: Spontaneous
  Country: GB (occurrence: GB)
  Receive Date: 20200928
  Receipt Date: 20200928
  Transmission Date: 20201103
  Serious: Yes (Hospitalization)
  Sender: FDA-Public Use
  Company Number: GB-TEVA-2020-GB-1831015

PATIENT
  Age: 69 Year
  Sex: Male

DRUGS (13)
  1. CO?CARELDOPA [Concomitant]
     Active Substance: CARBIDOPA\LEVODOPA
  2. MIRTAZAPINE. [Concomitant]
     Active Substance: MIRTAZAPINE
  3. DIGOXIN. [Concomitant]
     Active Substance: DIGOXIN
  4. BISOPROLOL [Concomitant]
     Active Substance: BISOPROLOL
  5. ACETYLSALICYLIC ACID [Concomitant]
     Active Substance: ASPIRIN
  6. MOVICOL [Concomitant]
     Active Substance: POLYETHYLENE GLYCOL 3350\POTASSIUM CHLORIDE\SODIUM BICARBONATE\SODIUM CHLORIDE
  7. DOCUSATE [Concomitant]
     Active Substance: DOCUSATE
  8. ATORVASTATIN [Concomitant]
     Active Substance: ATORVASTATIN
  9. HEPARIN [Concomitant]
     Active Substance: HEPARIN SODIUM
  10. LANSOPRAZOLE. [Concomitant]
     Active Substance: LANSOPRAZOLE
  11. MIDODRINE [Concomitant]
     Active Substance: MIDODRINE
  12. PARACETAMOL [Concomitant]
     Active Substance: ACETAMINOPHEN
  13. HALOPERIDOL. [Suspect]
     Active Substance: HALOPERIDOL
     Indication: TACHYPNOEA
     Dosage: UNIT DOSE 1.5MG
     Route: 048
     Dates: start: 20200824, end: 20200824

REACTIONS (2)
  - Rash [Unknown]
  - Anaphylactic reaction [Recovered/Resolved]
